FAERS Safety Report 6059004-8 (Version None)
Quarter: 2009Q1

REPORT INFORMATION
  Report Type: 
  Country: None (occurrence: None)
  Receive Date: 20090130
  Receipt Date: 20090126
  Transmission Date: 20090719
  Serious: Yes (Other)
  Sender: FDA-Public Use
  Company Number: A0765802A

PATIENT
  Age: 54 Year
  Sex: Female

DRUGS (3)
  1. MMR VACCINE [Suspect]
     Indication: PROPHYLAXIS
     Route: 065
     Dates: start: 20090108, end: 20090108
  2. VALTREX [Suspect]
     Indication: VARICELLA
     Dosage: 1G THREE TIMES PER DAY
     Dates: start: 20090121
  3. DIPHTHERIA + TETANUS VACCINE [Concomitant]
     Dates: start: 20090108, end: 20090108

REACTIONS (8)
  - BLISTER [None]
  - ERUCTATION [None]
  - HEPATIC ENZYME ABNORMAL [None]
  - MYALGIA [None]
  - NAUSEA [None]
  - PRURITUS [None]
  - PYREXIA [None]
  - VARICELLA [None]
